FAERS Safety Report 19812058 (Version 6)
Quarter: 2021Q4

REPORT INFORMATION
  Report Type: Report from Study
  Country: IT (occurrence: IT)
  Receive Date: 20210909
  Receipt Date: 20211203
  Transmission Date: 20220303
  Serious: Yes (Death, Hospitalization)
  Sender: FDA-Public Use
  Company Number: IT-DSRSG-DS8201AU207_39011002_000001

PATIENT
  Age: 55 Year
  Sex: Male
  Weight: 59 kg

DRUGS (9)
  1. TRASTUZUMAB DERUXTECAN [Suspect]
     Active Substance: TRASTUZUMAB DERUXTECAN
     Indication: Colorectal cancer
     Dosage: 6.4 MG/KG, ONCE EVERY 3 WK
     Route: 042
     Dates: start: 20210826, end: 20210826
  2. BISOPROLOL FUMARATE [Concomitant]
     Active Substance: BISOPROLOL FUMARATE
     Indication: Tachycardia
     Dosage: 2.5 MG, BID
     Route: 048
     Dates: start: 20210823
  3. KEPPRA [Concomitant]
     Active Substance: LEVETIRACETAM
     Indication: Prophylaxis
     Dosage: 500 OTHER
     Route: 048
     Dates: start: 20210422
  4. KEPPRA [Concomitant]
     Active Substance: LEVETIRACETAM
     Indication: Metastases to central nervous system
  5. ACETAMINOPHEN\OXYCODONE HYDROCHLORIDE [Concomitant]
     Active Substance: ACETAMINOPHEN\OXYCODONE HYDROCHLORIDE
     Indication: Back pain
     Dosage: 10 MG, QD
     Route: 048
     Dates: start: 202101
  6. OMEPRAZOLE [Concomitant]
     Active Substance: OMEPRAZOLE
     Indication: Gastritis prophylaxis
     Dosage: 20 MG, QD
     Route: 048
     Dates: start: 202101
  7. DEXIBUPROFEN [Concomitant]
     Active Substance: DEXIBUPROFEN
     Indication: Back pain
     Dosage: 400 MG, AS NEEDED
     Route: 048
     Dates: start: 20210810
  8. MERITENE [Concomitant]
     Indication: Decreased appetite
     Dosage: 20 ML, TTD
     Route: 048
     Dates: start: 20210818
  9. RIVOTRIL [Concomitant]
     Active Substance: CLONAZEPAM
     Indication: Insomnia
     Dosage: 5 DROP, QD
     Route: 048
     Dates: start: 20210818

REACTIONS (1)
  - Respiratory failure [Fatal]

NARRATIVE: CASE EVENT DATE: 20210826
